FAERS Safety Report 10280266 (Version 5)
Quarter: 2014Q3

REPORT INFORMATION
  Report Type: Spontaneous
  Country: PT (occurrence: PT)
  Receive Date: 20140707
  Receipt Date: 20140916
  Transmission Date: 20150326
  Serious: Yes (Hospitalization, Other)
  Sender: FDA-Public Use
  Company Number: PT-PFIZER INC-2014188297

PATIENT
  Age: 56 Year
  Sex: Female

DRUGS (22)
  1. PERTUZUMAB [Suspect]
     Active Substance: PERTUZUMAB
     Indication: HER-2 POSITIVE BREAST CANCER
     Dosage: 840 MG LOADING DOSE 21 DAY CYCLE
     Route: 042
     Dates: start: 20140616
  2. FUROSEMIDE. [Concomitant]
     Active Substance: FUROSEMIDE
     Dosage: UNK
     Dates: start: 20140721
  3. TRASTUZUMAB [Suspect]
     Active Substance: TRASTUZUMAB
     Indication: HER-2 POSITIVE BREAST CANCER
     Dosage: 6 MG/KG LOADING DOSE 21 DAY CYCLE
     Route: 042
     Dates: start: 20140616
  4. METOCLOPRAMIDE. [Concomitant]
     Active Substance: METOCLOPRAMIDE
     Dosage: UNK
     Dates: start: 20140527
  5. VOLTAREN [Concomitant]
     Active Substance: DICLOFENAC SODIUM
     Dosage: UNK
     Dates: start: 20140612, end: 20140625
  6. VANCOMICINA [Concomitant]
     Dosage: UNK
     Dates: start: 20140708, end: 20140718
  7. DOCETAXEL [Suspect]
     Active Substance: DOCETAXEL
     Indication: HER-2 POSITIVE BREAST CANCER
     Dosage: 160 MG 21 DAY CYCLE
     Route: 042
     Dates: start: 20140617
  8. PARACETAMOL [Concomitant]
     Active Substance: ACETAMINOPHEN
     Dosage: UNK
     Dates: start: 20140612, end: 20140625
  9. SEVREDOL [Suspect]
     Active Substance: MORPHINE
     Dosage: 20 MG, UNK
     Route: 065
     Dates: start: 20140612
  10. MORPHINE SULFATE. [Suspect]
     Active Substance: MORPHINE SULFATE
     Indication: PRODUCT USED FOR UNKNOWN INDICATION
     Dosage: 60 MG, 2X/DAY
     Route: 048
     Dates: start: 20140625
  11. MORPHINE SULFATE. [Suspect]
     Active Substance: MORPHINE SULFATE
     Dosage: 10 MG, DAILY
     Route: 065
     Dates: start: 20140615
  12. MORPHINE HYDROCHLORIDE [Suspect]
     Active Substance: MORPHINE HYDROCHLORIDE
     Indication: PRODUCT USED FOR UNKNOWN INDICATION
     Dosage: 60 MG, 2X/DAY
     Route: 065
     Dates: start: 20140625
  13. OMEPRAZOL [Concomitant]
     Active Substance: OMEPRAZOLE
     Dosage: UNK
     Dates: start: 20140527
  14. MYCOSTATIN [Concomitant]
     Active Substance: NYSTATIN
     Dosage: UNK
     Dates: start: 20140612
  15. SEVREDOL [Suspect]
     Active Substance: MORPHINE
     Indication: PRODUCT USED FOR UNKNOWN INDICATION
     Dosage: 10 MG, DAILY
     Route: 048
     Dates: start: 20140612
  16. GABAPENTINA [Concomitant]
     Active Substance: GABAPENTIN
     Dosage: UNK
     Dates: start: 20140627, end: 20140708
  17. NOLOTIL [Concomitant]
     Active Substance: METAMIZOLE
     Dosage: UNK
     Dates: start: 20140612
  18. MORPHINE SULFATE. [Suspect]
     Active Substance: MORPHINE SULFATE
     Dosage: 10 MG/ML, DAILY
     Route: 065
     Dates: start: 20140621, end: 20140718
  19. TRAMAL [Concomitant]
     Active Substance: TRAMADOL
     Dosage: UNK
     Dates: start: 20140612, end: 20140625
  20. LOPERAMIDE [Concomitant]
     Active Substance: LOPERAMIDE
     Dosage: UNK
     Dates: start: 20140612
  21. DOMPERIDONE [Concomitant]
     Active Substance: DOMPERIDONE
     Dosage: UNK
     Dates: start: 20140612
  22. LYRICA [Concomitant]
     Active Substance: PREGABALIN
     Dosage: UNK
     Dates: start: 20140718

REACTIONS (6)
  - Neutropenia [Recovered/Resolved]
  - Drug hypersensitivity [Recovered/Resolved]
  - Electrolyte imbalance [Unknown]
  - Vomiting [Unknown]
  - Diarrhoea [Recovered/Resolved]
  - Pyrexia [Recovered/Resolved]

NARRATIVE: CASE EVENT DATE: 20140621
